FAERS Safety Report 22040006 (Version 5)
Quarter: 2023Q2

REPORT INFORMATION
  Report Type: Report from Study
  Country: US (occurrence: US)
  Receive Date: 20230227
  Receipt Date: 20230511
  Transmission Date: 20230722
  Serious: Yes (Hospitalization)
  Sender: FDA-Public Use
  Company Number: US-PFIZER INC-PV202300032799

PATIENT
  Age: 59 Year
  Sex: Male
  Weight: 88.435 kg

DRUGS (4)
  1. OXALIPLATIN [Suspect]
     Active Substance: OXALIPLATIN
     Indication: Hepatocellular carcinoma
     Dosage: 127.5 MG, EVERY TWO WEEKS, IN 5% DEXTROSE 250 ML, ELOXATIN, NOT ONGOING
     Route: 041
     Dates: start: 20220929
  2. FLUOROURACIL [Suspect]
     Active Substance: FLUOROURACIL
     Indication: Hepatocellular carcinoma
     Dosage: 3950 MG, EVERY TWO WEEKS, IN SODIUM CHLORIDE 0.9% 13 ML
     Route: 040
     Dates: start: 20220929
  3. ERBITUX [Suspect]
     Active Substance: CETUXIMAB
     Indication: Hepatocellular carcinoma
     Dosage: 1000 MG, EVERY 14 DAYS
     Route: 040
     Dates: start: 20220929
  4. ENCORAFENIB [Suspect]
     Active Substance: ENCORAFENIB
     Indication: Hepatocellular carcinoma
     Dosage: 75 MG, 4X/DAY, PILL
     Route: 048
     Dates: start: 20220929

REACTIONS (1)
  - Cellulitis [Recovered/Resolved]

NARRATIVE: CASE EVENT DATE: 20230211
